FAERS Safety Report 6634462-6 (Version None)
Quarter: 2010Q1

REPORT INFORMATION
  Report Type: 
  Country: None (occurrence: None)
  Receive Date: 20100315
  Receipt Date: 20100302
  Transmission Date: 20100710
  Serious: Yes (Other)
  Sender: FDA-Public Use
  Company Number: MX-ROCHE-688514

PATIENT
  Sex: Female
  Weight: 60 kg

DRUGS (5)
  1. MIRCERA [Suspect]
     Route: 065
     Dates: start: 20100224, end: 20100224
  2. CANDESARTAN [Concomitant]
     Indication: HYPERTENSION
     Dosage: DOSE: 16 MG
     Route: 048
  3. METOPROLOL [Concomitant]
     Indication: HYPERTENSION
     Dosage: DOSE: 50 MG
     Route: 048
  4. OMEPRAZOLE [Concomitant]
     Indication: PROPHYLAXIS
     Dosage: DOSE:20 MG
     Route: 048
  5. SODIUM CARBONATE [Concomitant]
     Indication: DRUG USE FOR UNKNOWN INDICATION
     Dosage: DOSE: 1 GM
     Route: 048

REACTIONS (1)
  - GRAND MAL CONVULSION [None]
